FAERS Safety Report 4779615-7 (Version None)
Quarter: 2005Q3

REPORT INFORMATION
  Report Type: 
  Country: None (occurrence: None)
  Receive Date: 20050923
  Receipt Date: 20050921
  Transmission Date: 20060218
  Serious: Yes (Hospitalization)
  Sender: FDA-Public Use
  Company Number: 216108

PATIENT
  Age: 58 Year
  Sex: Male
  Weight: 71.9 kg

DRUGS (11)
  1. BEVACIZUMAB (BEVACIZUMAB) PWDR + SOLVENT, INFUSION SOLN, 100MG [Suspect]
     Indication: COLON CANCER METASTATIC
     Dosage: 10 MG/M2, Q14D, UNK
     Dates: start: 20050422
  2. OXALIPLATIN(OXALIPLATIN) [Suspect]
     Indication: COLON CANCER METASTATIC
     Dosage: 85 MG/M2, Q14D, UNK
     Dates: start: 20050422
  3. XELODA [Suspect]
     Indication: COLON CANCER METASTATIC
     Dosage: 1650 MG, BID, UNK
     Dates: start: 20050422
  4. OXYCONTIN [Concomitant]
  5. OXYCODONE HCL [Concomitant]
  6. DEPAKOTE [Concomitant]
  7. LAMICTAL [Concomitant]
  8. WELLBUTRIN XL [Concomitant]
  9. ZOFRAN (ONDANSETON HYDROCHLORIDE) [Concomitant]
  10. COMPAZINE [Concomitant]
  11. STOOL SOFTENER NOS (STOOL SOFTENER NOS) [Concomitant]

REACTIONS (3)
  - ANAEMIA [None]
  - CONVULSION [None]
  - THROMBOCYTOPENIA [None]
